FAERS Safety Report 8017948-1 (Version None)
Quarter: 2012Q1

REPORT INFORMATION
  Report Type: 
  Country: None (occurrence: None)
  Receive Date: 20120103
  Receipt Date: 20111223
  Transmission Date: 20120608
  Serious: Yes (Death)
  Sender: FDA-Public Use
  Company Number: US-AMGEN-USASP2011068934

PATIENT
  Age: 51 Year
  Sex: Female

DRUGS (16)
  1. CORTICOSTEROIDS [Concomitant]
     Indication: IDIOPATHIC THROMBOCYTOPENIC PURPURA
  2. MIRALAX                            /00754501/ [Concomitant]
     Indication: CONSTIPATION
     Dosage: 17 G, PRN
  3. DULCOLAX [Concomitant]
     Indication: CONSTIPATION
     Dosage: 10 MG, PRN
     Route: 054
  4. MAALOX                             /00082501/ [Concomitant]
     Dosage: UNK UNK, PRN
  5. NPLATE [Suspect]
     Indication: IDIOPATHIC THROMBOCYTOPENIC PURPURA
     Dosage: 1 MUG/KG, ONE TIME DOSE
     Route: 058
     Dates: start: 20110705, end: 20110705
  6. IVIGLOB-EX [Concomitant]
     Indication: IDIOPATHIC THROMBOCYTOPENIC PURPURA
  7. PREDNISONE TAB [Concomitant]
  8. OMEPRAZOLE [Concomitant]
     Dosage: 20 MG, QD
  9. LORAZEPAM [Concomitant]
     Indication: ANXIETY
     Dosage: 1 MG, PRN
  10. MORPHINE SULFATE [Concomitant]
     Indication: PAIN
     Dosage: UNK UNK, PRN
     Route: 048
  11. AFRIN                              /00070001/ [Concomitant]
     Dosage: UNK UNK, PRN
     Route: 045
  12. SENOKOT [Concomitant]
     Dosage: UNK UNK, BID
     Route: 048
  13. SODIUM CHLORIDE [Concomitant]
     Dosage: UNK UNK, PRN
     Route: 045
  14. PROMETHAZINE [Concomitant]
     Dosage: UNK UNK, PRN
     Route: 048
  15. SPIRONOLACTONE [Concomitant]
     Dosage: 50 MG, QD
  16. MS CONTIN [Concomitant]
     Dosage: 15 MG, BID

REACTIONS (1)
  - METASTATIC NEOPLASM [None]
